FAERS Safety Report 7554842-4 (Version None)
Quarter: 2011Q2

REPORT INFORMATION
  Report Type: 
  Country: None (occurrence: None)
  Receive Date: 20110617
  Receipt Date: 20110608
  Transmission Date: 20111010
  Serious: Yes (Life-Threatening)
  Sender: FDA-Public Use
  Company Number: NL-MERCK-1106NLD00004

PATIENT
  Age: 46 Year
  Sex: Female

DRUGS (7)
  1. CLOZAPINE [Concomitant]
     Route: 048
  2. RISPERIDONE [Concomitant]
     Route: 048
  3. AMITRIPTYLINE HYDROCHLORIDE [Concomitant]
     Route: 048
  4. CLOMIPRAMINE HYDROCHLORIDE [Concomitant]
     Route: 048
  5. ZOCOR [Suspect]
     Route: 048
     Dates: start: 20110327, end: 20110403
  6. LEVOTHYROXINE SODIUM [Concomitant]
     Route: 065
  7. LITHIUM CARBONATE [Concomitant]
     Route: 048

REACTIONS (2)
  - SUICIDAL IDEATION [None]
  - DEPRESSION [None]
